FAERS Safety Report 9698688 (Version 2)
Quarter: 2014Q2

REPORT INFORMATION
  Report Type: Report from Study
  Country: CN (occurrence: CN)
  Receive Date: 20131120
  Receipt Date: 20140421
  Transmission Date: 20141212
  Serious: Yes (Hospitalization, Other)
  Sender: FDA-Public Use
  Company Number: CN-ROCHE-1305648

PATIENT
  Sex: Male
  Weight: 69 kg

DRUGS (1)
  1. AVASTIN [Suspect]
     Indication: RECTAL CANCER
     Route: 042
     Dates: start: 20120329

REACTIONS (4)
  - Metastases to lung [Unknown]
  - Renal cyst [Unknown]
  - Lung infection [Unknown]
  - Pneumonia [Unknown]
